FAERS Safety Report 16758175 (Version 1)
Quarter: 2019Q3

REPORT INFORMATION
  Report Type: Spontaneous
  Country: FR (occurrence: FR)
  Receive Date: 20190830
  Receipt Date: 20190830
  Transmission Date: 20191005
  Serious: Yes (Hospitalization)
  Sender: FDA-Public Use
  Company Number: FR-TEVA-2019-FR-1099685

PATIENT
  Age: 90 Year
  Sex: Female
  Weight: 65 kg

DRUGS (11)
  1. FUROSEMIDE. [Concomitant]
     Active Substance: FUROSEMIDE
     Dosage: 40 MG
     Route: 041
     Dates: start: 20190718, end: 20190719
  2. LEVOTHYROX 50 MICROGRAMMES, COMPRIME SECABLE [Concomitant]
     Active Substance: LEVOTHYROXINE SODIUM
     Indication: HYPOTHYROIDISM
     Dosage: 50 MICROGRAM
     Route: 048
  3. CALCIDOSE VITAMINE D, POUDRE ORALE EN SACHET-DOSE [Concomitant]
     Active Substance: CALCIUM\CHOLECALCIFEROL
     Indication: VITAMIN D DEFICIENCY
     Dosage: 2 DF
     Route: 048
  4. ELIQUIS [Suspect]
     Active Substance: APIXABAN
     Indication: ATRIAL FIBRILLATION
     Dosage: 10 MG
     Route: 048
     Dates: start: 20190716, end: 20190722
  5. ALDACTONE [Concomitant]
     Active Substance: SPIRONOLACTONE
     Indication: HYPERTENSION
     Dosage: 50 MG
     Route: 048
     Dates: end: 20190726
  6. FUROSEMIDE. [Concomitant]
     Active Substance: FUROSEMIDE
     Indication: PRODUCT USED FOR UNKNOWN INDICATION
     Dosage: 40 MG
     Route: 041
     Dates: start: 20190415, end: 20190717
  7. AMIODARONE [Suspect]
     Active Substance: AMIODARONE
     Indication: ATRIAL FIBRILLATION
     Dosage: 200 MG
     Route: 048
     Dates: end: 20190720
  8. DEPAKINE [Suspect]
     Active Substance: VALPROATE SODIUM
     Dosage: 1000 MG
     Route: 048
     Dates: end: 20190717
  9. CEFTRIAXONE BASE [Suspect]
     Active Substance: CEFTRIAXONE
     Indication: INFLAMMATION
     Dosage: 1 G
     Route: 042
     Dates: start: 20190718, end: 20190802
  10. LAMICTAL [Suspect]
     Active Substance: LAMOTRIGINE
     Indication: EPILEPSY
     Dosage: 25 MG
     Route: 048
     Dates: start: 20190717
  11. FUROSEMIDE. [Concomitant]
     Active Substance: FUROSEMIDE
     Dosage: 40 MG
     Route: 041
     Dates: start: 20190717, end: 20190718

REACTIONS (3)
  - Anaemia [Not Recovered/Not Resolved]
  - Thrombocytopenia [Recovered/Resolved]
  - Haematoma [Recovering/Resolving]

NARRATIVE: CASE EVENT DATE: 20190722
